FAERS Safety Report 7831891-X (Version None)
Quarter: 2011Q4

REPORT INFORMATION
  Report Type: 
  Country: None (occurrence: None)
  Receive Date: 20111021
  Receipt Date: 20111013
  Transmission Date: 20120403
  Serious: Yes (Hospitalization)
  Sender: FDA-Public Use
  Company Number: AT-ABBOTT-11P-009-0864191-00

PATIENT
  Age: 29 Year
  Sex: Male
  Weight: 40 kg

DRUGS (40)
  1. ZEMPLAR [Suspect]
     Dates: start: 20091020, end: 20100126
  2. ZEMPLAR [Suspect]
     Dates: start: 20100126, end: 20100811
  3. METHYLPREDNISOLONE [Concomitant]
     Route: 048
     Dates: start: 20110331, end: 20110915
  4. FERRLECIT [Concomitant]
     Indication: PRODUCT USED FOR UNKNOWN INDICATION
     Route: 042
     Dates: start: 20070807, end: 20101021
  5. DIOVAN [Concomitant]
     Indication: PRODUCT USED FOR UNKNOWN INDICATION
     Route: 048
     Dates: start: 20100603, end: 20100811
  6. LEXOTANIL [Concomitant]
     Indication: PRODUCT USED FOR UNKNOWN INDICATION
     Route: 048
     Dates: start: 20100813, end: 20110113
  7. ETALPHA [Concomitant]
     Indication: PRODUCT USED FOR UNKNOWN INDICATION
     Route: 048
     Dates: start: 20101111
  8. ANTIPHOS [Concomitant]
     Indication: PRODUCT USED FOR UNKNOWN INDICATION
     Dosage: 12200 MG PER WEEK
     Dates: start: 20080506, end: 20091008
  9. CINACALCET HYDROCHLORIDE [Concomitant]
     Route: 048
     Dates: start: 20110316, end: 20110405
  10. LAEVOLAC [Concomitant]
     Indication: PRODUCT USED FOR UNKNOWN INDICATION
     Dosage: ON DEMAND
  11. THOMAPYRIN [Concomitant]
     Indication: PRODUCT USED FOR UNKNOWN INDICATION
     Route: 048
     Dates: start: 20080306
  12. ZEMPLAR [Suspect]
     Indication: SECONDARY HYPERTHYROIDISM
     Dates: start: 20090526, end: 20090709
  13. ZEMPLAR [Suspect]
     Dates: start: 20110113, end: 20110516
  14. NEORECORMON [Concomitant]
     Indication: PRODUCT USED FOR UNKNOWN INDICATION
     Dosage: 1000 I.E.
     Route: 042
     Dates: start: 20070605, end: 20091117
  15. ITERIUM [Concomitant]
     Indication: PRODUCT USED FOR UNKNOWN INDICATION
     Route: 048
     Dates: start: 20100813, end: 20100909
  16. AMITRIPTYLINE HCL [Concomitant]
     Indication: PRODUCT USED FOR UNKNOWN INDICATION
     Route: 048
     Dates: start: 20100909
  17. ZEMPLAR [Suspect]
     Dates: start: 20110927
  18. RENAGEL [Concomitant]
     Indication: PRODUCT USED FOR UNKNOWN INDICATION
     Route: 048
     Dates: start: 20090810, end: 20101221
  19. LERCANIDIPINE [Concomitant]
     Indication: PRODUCT USED FOR UNKNOWN INDICATION
     Route: 048
     Dates: start: 20100703, end: 20100811
  20. PANTOPRAZOLE SODIUM [Concomitant]
     Indication: PRODUCT USED FOR UNKNOWN INDICATION
     Route: 048
     Dates: start: 20100807
  21. ITERIUM [Concomitant]
     Route: 048
     Dates: start: 20110409
  22. NOMEXOR [Concomitant]
     Indication: PRODUCT USED FOR UNKNOWN INDICATION
     Route: 048
     Dates: start: 20100813
  23. BAYPRESS [Concomitant]
     Indication: PRODUCT USED FOR UNKNOWN INDICATION
     Route: 048
     Dates: start: 20100903, end: 20100904
  24. ZEMPLAR [Suspect]
     Dates: start: 20110714, end: 20110927
  25. MEXALEN [Concomitant]
     Indication: PRODUCT USED FOR UNKNOWN INDICATION
     Dosage: ON DEMAND
  26. DESLORATADINE [Concomitant]
     Indication: PRODUCT USED FOR UNKNOWN INDICATION
     Route: 048
     Dates: start: 20091020, end: 20100603
  27. EXFORGE HCT [Concomitant]
     Indication: PRODUCT USED FOR UNKNOWN INDICATION
     Dosage: 1-10/160/12.5 TAB DAILY
     Route: 048
     Dates: start: 20100811
  28. LASIX [Concomitant]
     Indication: PRODUCT USED FOR UNKNOWN INDICATION
     Route: 048
     Dates: start: 20110915
  29. ZEMPLAR [Suspect]
     Dates: start: 20090806, end: 20091020
  30. ZEMPLAR [Suspect]
     Dates: start: 20110517, end: 20110712
  31. AGAFFIN [Concomitant]
     Indication: PRODUCT USED FOR UNKNOWN INDICATION
     Dosage: 2X1 TABLESPOON
     Route: 048
     Dates: start: 20100111, end: 20100208
  32. CARVEDILOL [Concomitant]
     Indication: PRODUCT USED FOR UNKNOWN INDICATION
     Route: 048
     Dates: start: 20100811, end: 20100904
  33. LENDORM [Concomitant]
     Indication: PRODUCT USED FOR UNKNOWN INDICATION
     Route: 048
     Dates: start: 20110907
  34. CINACALCET HYDROCHLORIDE [Concomitant]
     Indication: PRODUCT USED FOR UNKNOWN INDICATION
     Dosage: 420 MG PER WEEK
     Dates: end: 20081112
  35. ZEMPLAR [Suspect]
     Dates: start: 20090709, end: 20090806
  36. METHYLPREDNISOLONE [Concomitant]
     Indication: PRODUCT USED FOR UNKNOWN INDICATION
  37. ARANESP [Concomitant]
     Indication: PRODUCT USED FOR UNKNOWN INDICATION
  38. ARANESP [Concomitant]
     Route: 042
     Dates: start: 20091201
  39. FERMED [Concomitant]
     Indication: PRODUCT USED FOR UNKNOWN INDICATION
     Dosage: TEMPORARY PAUSED
     Route: 042
     Dates: start: 20110111
  40. RENVELA [Concomitant]
     Indication: PRODUCT USED FOR UNKNOWN INDICATION
     Route: 048
     Dates: start: 20101221

REACTIONS (1)
  - TOOTH DISORDER [None]
